FAERS Safety Report 4944621-6 (Version None)
Quarter: 2006Q1

REPORT INFORMATION
  Report Type: 
  Country: None (occurrence: None)
  Receive Date: 20060315
  Receipt Date: 20050907
  Transmission Date: 20060701
  Serious: Yes (Other)
  Sender: FDA-Public Use
  Company Number: PHEH2005US09920

PATIENT
  Age: 51 Year
  Sex: Female

DRUGS (5)
  1. ZOMETA [Suspect]
     Indication: METASTASES TO BONE
     Dosage: 4MG QMO
     Dates: start: 20040615, end: 20050608
  2. TAXOL [Concomitant]
     Dosage: 260MG QWK
     Dates: start: 20031221, end: 20040111
  3. VINORELBINE [Concomitant]
     Dates: start: 20040720, end: 20040929
  4. GEMZAR [Concomitant]
     Dosage: 1.4GM QWK
     Dates: start: 20040720, end: 20040929
  5. TAXOTERE [Concomitant]
     Dosage: 120MG QMO
     Dates: start: 20041022, end: 20050406

REACTIONS (18)
  - BONE DISORDER [None]
  - EATING DISORDER SYMPTOM [None]
  - GINGIVAL INFECTION [None]
  - GINGIVITIS [None]
  - IMPAIRED HEALING [None]
  - LYMPH NODE PAIN [None]
  - OSTEOMYELITIS [None]
  - OSTEONECROSIS [None]
  - PAIN [None]
  - PAIN IN JAW [None]
  - PARAESTHESIA [None]
  - PRIMARY SEQUESTRUM [None]
  - PURULENCE [None]
  - SOFT TISSUE INFECTION [None]
  - SWELLING [None]
  - TOOTH EXTRACTION [None]
  - TRISMUS [None]
  - WEIGHT DECREASED [None]
